FAERS Safety Report 10029422 (Version 2)
Quarter: 2014Q1

REPORT INFORMATION
  Report Type: Report from Study
  Country: US (occurrence: US)
  Receive Date: 20140322
  Receipt Date: 20140322
  Transmission Date: 20141002
  Serious: Yes (Hospitalization)
  Sender: FDA-Public Use
  Company Number: PHEH2013US013534

PATIENT
  Age: 33 Year
  Sex: Male

DRUGS (1)
  1. EXTAVIA [Suspect]
     Indication: MULTIPLE SCLEROSIS
     Dosage: 0.250 MG, QOD
     Route: 058
     Dates: start: 2013

REACTIONS (12)
  - Laceration [Unknown]
  - Fall [Unknown]
  - Infection [Unknown]
  - Gait disturbance [Unknown]
  - Sensation of heaviness [Unknown]
  - Dysstasia [Unknown]
  - Sleep disorder [Unknown]
  - Depression [Unknown]
  - Listless [Unknown]
  - Influenza like illness [Unknown]
  - Malaise [Unknown]
  - Fatigue [Unknown]
